FAERS Safety Report 5794749-6 (Version None)
Quarter: 2008Q2

REPORT INFORMATION
  Report Type: 
  Country: None (occurrence: None)
  Receive Date: 20080630
  Receipt Date: 20080617
  Transmission Date: 20081010
  Serious: Yes (Death, Hospitalization)
  Sender: FDA-Public Use
  Company Number: CZ-AMGEN-UK258617

PATIENT
  Age: 77 Year
  Sex: Male

DRUGS (15)
  1. MIMPARA [Suspect]
     Indication: HYPERPARATHYROIDISM SECONDARY
     Route: 048
     Dates: start: 20070831, end: 20080128
  2. ERYTHROPOIETIN HUMAN [Suspect]
     Route: 042
     Dates: start: 20070528
  3. DIOSMIN [Concomitant]
     Route: 048
     Dates: start: 20020221
  4. SIMETHICONE [Concomitant]
     Route: 048
     Dates: start: 20070110
  5. FUROSEMIDE [Concomitant]
     Route: 048
     Dates: start: 20060617
  6. OMEPRAZOLE [Concomitant]
     Route: 048
     Dates: start: 20060617
  7. PYRIDOSTIGMINE BROMIDE [Concomitant]
     Route: 048
     Dates: start: 20041124
  8. RAMIPRIL [Concomitant]
     Route: 048
     Dates: start: 20050821
  9. SEVELAMER HCL [Concomitant]
     Route: 048
     Dates: start: 20070105
  10. RILMENIDINE [Concomitant]
     Route: 048
     Dates: start: 20061108
  11. PARICALCITOL [Concomitant]
     Route: 042
     Dates: start: 20070831
  12. AMLODIPINE [Concomitant]
     Route: 048
     Dates: start: 20070514
  13. FLAVON [Concomitant]
     Route: 048
  14. ZOLPIDEM [Concomitant]
     Route: 065
  15. BIOFLAVONOIDS [Concomitant]
     Route: 065

REACTIONS (1)
  - BONE MARROW FAILURE [None]
